FAERS Safety Report 4970329-7 (Version None)
Quarter: 2006Q2

REPORT INFORMATION
  Report Type: 
  Country: None (occurrence: None)
  Receive Date: 20060406
  Receipt Date: 20060321
  Transmission Date: 20061013
  Serious: Yes (Other)
  Sender: FDA-Public Use
  Company Number: US200601005345

PATIENT
  Age: 14 Year
  Sex: Male
  Weight: 45.4 kg

DRUGS (2)
  1. STRATTERA [Suspect]
     Indication: ATTENTION DEFICIT/HYPERACTIVITY DISORDER
     Dosage: SEE IMAGE
     Dates: start: 20030101, end: 20050101
  2. STRATTERA [Suspect]
     Indication: ATTENTION DEFICIT/HYPERACTIVITY DISORDER
     Dosage: SEE IMAGE
     Dates: start: 20060201, end: 20060101

REACTIONS (7)
  - CONVULSION [None]
  - DRUG INEFFECTIVE [None]
  - JOINT SWELLING [None]
  - LYME DISEASE [None]
  - MUSCULOSKELETAL STIFFNESS [None]
  - SKIN DISCOLOURATION [None]
  - WEIGHT DECREASED [None]
